FAERS Safety Report 9879876 (Version 4)
Quarter: 2014Q3

REPORT INFORMATION
  Report Type: Spontaneous
  Country: CA (occurrence: CA)
  Receive Date: 20140206
  Receipt Date: 20140721
  Transmission Date: 20150326
  Serious: Yes (Other)
  Sender: FDA-Public Use
  Company Number: CA-AMGEN-CANSP2013063347

PATIENT
  Age: 70 Year
  Sex: Female
  Weight: 72.56 kg

DRUGS (8)
  1. FERAMAX [Concomitant]
     Active Substance: IRON\POLYSACCHARIDES
     Dosage: UNK
  2. LANSOPRAZOLE. [Concomitant]
     Active Substance: LANSOPRAZOLE
     Dosage: UNK
  3. FOLIC ACID. [Concomitant]
     Active Substance: FOLIC ACID
     Dosage: UNK
  4. METHOTREXATE (METHOTREXATE SODIUM) [Concomitant]
     Active Substance: METHOTREXATE SODIUM
  5. ENBREL [Suspect]
     Active Substance: ETANERCEPT
     Indication: RHEUMATOID ARTHRITIS
     Dosage: 50 MG, QWK
     Route: 058
     Dates: start: 201306, end: 20130819
  6. VITAMIN B12 [Concomitant]
     Active Substance: CYANOCOBALAMIN
     Dosage: UNK
  7. ACTONEL [Concomitant]
     Active Substance: RISEDRONATE SODIUM
     Dosage: UNK
  8. PREDNISONE. [Concomitant]
     Active Substance: PREDNISONE
     Dosage: UNK

REACTIONS (18)
  - Feeling hot [Recovering/Resolving]
  - Ear pain [Recovering/Resolving]
  - Fatigue [Recovered/Resolved]
  - Chest discomfort [Recovering/Resolving]
  - Hypochromasia [Unknown]
  - Polychromasia [Unknown]
  - Dizziness [Recovered/Resolved]
  - Arthralgia [Unknown]
  - Thrombocytopenia [Unknown]
  - Haemoglobin decreased [Recovered/Resolved]
  - Pain [Unknown]
  - Myalgia [Unknown]
  - Drug ineffective [Unknown]
  - Anaemia [Unknown]
  - White blood cell count decreased [Recovering/Resolving]
  - Red blood cell count decreased [Recovering/Resolving]
  - Pyrexia [Recovering/Resolving]
  - Microcytosis [Unknown]

NARRATIVE: CASE EVENT DATE: 20130819
